FAERS Safety Report 7241179 (Version 5)
Quarter: 2013Q1

REPORT INFORMATION
  Report Type: Spontaneous
  Country: GB (occurrence: GB)
  Receive Date: 20100108
  Receipt Date: 20130324
  Transmission Date: 20140127
  Serious: Yes (Life-Threatening, Hospitalization, Other)
  Sender: FDA-Public Use
  Company Number: GB-PFIZER INC-2010000299

PATIENT
  Sex: Female

DRUGS (21)
  1. GABAPENTIN [Suspect]
     Indication: NEURALGIA
     Dosage: 1.8 G, 1X/DAY
     Route: 064
  2. GABAPENTIN [Suspect]
     Indication: MYELITIS TRANSVERSE
  3. MORPHINE SULFATE [Suspect]
     Indication: MYELITIS TRANSVERSE
     Dosage: 15 MG, 1X/DAY IN THE EVENING AS NECESSARY
     Route: 064
  4. MORPHINE SULFATE [Suspect]
     Indication: NEURALGIA
  5. FLUOXETINE HCL [Suspect]
     Indication: MAJOR DEPRESSION
     Route: 064
  6. TRAMADOL HYDROCHLORIDE [Suspect]
     Indication: MYELITIS TRANSVERSE
     Dosage: 100 MG, EVERY 6 HRS
     Route: 064
  7. TRAMADOL HYDROCHLORIDE [Suspect]
     Indication: NEURALGIA
  8. AMITRIPTYLINE [Suspect]
     Indication: MYELITIS TRANSVERSE
     Dosage: 25 MG DAILY
     Route: 064
  9. AMITRIPTYLINE [Suspect]
     Indication: NEURALGIA
  10. TRIFLUOPERAZINE [Suspect]
     Indication: MAJOR DEPRESSION
     Route: 064
  11. HEPARIN [Concomitant]
     Indication: DEEP VEIN THROMBOSIS
     Dosage: 5000 IU, 2X/DAY
     Route: 064
  12. NORMAL HUMAN IMMUNOGLOBULIN [Concomitant]
     Indication: MYELITIS
     Dosage: 42MG DAILY
     Route: 064
  13. ISOFLURANE [Concomitant]
     Indication: ANAESTHESIA
     Route: 064
  14. METHYLPREDNISOLONE [Concomitant]
     Indication: MYELITIS
     Dosage: 1 G DAILY
     Route: 064
  15. NITROUS OXIDE [Concomitant]
     Indication: ANAESTHESIA
     Route: 064
  16. PARACETAMOL [Concomitant]
     Indication: MAJOR DEPRESSION
     Dosage: 1 G, EVERY 6 HRS
     Route: 064
  17. RANITIDINE [Concomitant]
     Dosage: 150 MG, 1X/DAY
     Route: 064
  18. ROCURONIUM [Concomitant]
     Indication: ANAESTHESIA
     Dosage: 60 MG, 1X/DAY
     Route: 064
  19. SODIUM CITRATE [Concomitant]
     Dosage: 30 ML, 1X/DAY
     Route: 064
  20. THIOPENTAL [Concomitant]
     Indication: ANAESTHESIA
     Dosage: 450 MG, 1X/DAY
     Route: 064
  21. VITAMIN B12 [Concomitant]
     Indication: MACROCYTOSIS
     Dosage: 1 MG, 1X/DAY
     Route: 064

REACTIONS (4)
  - Maternal exposure during pregnancy [Recovered/Resolved]
  - Apnoea neonatal [Recovered/Resolved]
  - Drug withdrawal syndrome [Recovered/Resolved]
  - Drug withdrawal syndrome neonatal [Recovered/Resolved]
